FAERS Safety Report 15348814 (Version 1)
Quarter: 2018Q3

REPORT INFORMATION
  Report Type: Spontaneous
  Country: US (occurrence: US)
  Receive Date: 20180904
  Receipt Date: 20180904
  Transmission Date: 20181010
  Serious: Yes (Other)
  Sender: FDA-Public Use
  Company Number: US-THE MENTHOLATUM COMPANY-2054593

PATIENT
  Age: 78 Year
  Sex: Female
  Weight: 59.09 kg

DRUGS (1)
  1. ROHTO DRY?AID [Suspect]
     Active Substance: POVIDONE\PROPYLENE GLYCOL
     Indication: DRY EYE
     Route: 047
     Dates: start: 20180801, end: 20180801

REACTIONS (1)
  - Chemical burn [Recovering/Resolving]

NARRATIVE: CASE EVENT DATE: 20180801
